FAERS Safety Report 7212651-X (Version None)
Quarter: 2011Q1

REPORT INFORMATION
  Report Type: 
  Country: None (occurrence: None)
  Receive Date: 20110106
  Receipt Date: 20101228
  Transmission Date: 20110831
  Serious: Yes (Other)
  Sender: FDA-Public Use
  Company Number: JP-ASTRAZENECA-2010SE60685

PATIENT
  Age: 67 Year
  Sex: Male
  Weight: 68 kg

DRUGS (1)
  1. XYLOCAINE [Suspect]
     Indication: NERVE BLOCK
     Route: 053

REACTIONS (3)
  - MUSCULAR WEAKNESS [None]
  - DYSAESTHESIA [None]
  - MUSCLE ATROPHY [None]
